FAERS Safety Report 20923856 (Version 2)
Quarter: 2022Q4

REPORT INFORMATION
  Report Type: Report from Study
  Country: GB (occurrence: None)
  Receive Date: 20220607
  Receipt Date: 20221123
  Transmission Date: 20230112
  Serious: Yes (Other)
  Sender: FDA-Public Use
  Company Number: GB-002147023-NVSC2022GB119332

PATIENT
  Age: 52 Year
  Sex: Female

DRUGS (4)
  1. METHOTREXATE [Suspect]
     Active Substance: METHOTREXATE
     Indication: Product used for unknown indication
     Route: 065
  2. COSENTYX [Suspect]
     Active Substance: SECUKINUMAB
     Indication: Psoriatic arthropathy
     Dosage: 150 MG, QW (WEEK 0, 1, 2, 3, 4) (2 PRE-FILLED DISPOSABLE INJECTION)
     Route: 065
     Dates: start: 20190608
  3. COSENTYX [Suspect]
     Active Substance: SECUKINUMAB
     Route: 058
  4. COSENTYX [Suspect]
     Active Substance: SECUKINUMAB
     Indication: Psoriatic arthropathy
     Route: 065

REACTIONS (13)
  - Liver injury [Unknown]
  - Mental impairment [Not Recovered/Not Resolved]
  - Fibromyalgia [Unknown]
  - Eye disorder [Unknown]
  - Ear pain [Unknown]
  - Illness [Unknown]
  - Anxiety [Unknown]
  - Headache [Unknown]
  - Memory impairment [Unknown]
  - Decreased appetite [Not Recovered/Not Resolved]
  - Depressed mood [Not Recovered/Not Resolved]
  - Tearfulness [Not Recovered/Not Resolved]
  - Stress [Not Recovered/Not Resolved]
